FAERS Safety Report 6978444-3 (Version None)
Quarter: 2010Q3

REPORT INFORMATION
  Report Type: 
  Country: None (occurrence: None)
  Receive Date: 20100913
  Receipt Date: 20100909
  Transmission Date: 20110219
  Serious: Yes (Death)
  Sender: FDA-Public Use
  Company Number: JP-ASTRAZENECA-2010SE36246

PATIENT
  Age: 88 Year
  Sex: Male

DRUGS (2)
  1. CASODEX [Suspect]
     Indication: PROSTATE CANCER
     Route: 048
  2. OMEPRAL [Suspect]
     Dosage: DOSE UNKNOWN
     Route: 048

REACTIONS (2)
  - HYPONATRAEMIA [None]
  - INTERSTITIAL LUNG DISEASE [None]
